FAERS Safety Report 10203243 (Version 1)
Quarter: 2014Q2

REPORT INFORMATION
  Report Type: Report from Study
  Country: US (occurrence: US)
  Receive Date: 20140529
  Receipt Date: 20140529
  Transmission Date: 20141212
  Serious: Yes (Other)
  Sender: FDA-Public Use
  Company Number: US-ROCHE-1408887

PATIENT
  Sex: Female
  Weight: 19.55 kg

DRUGS (1)
  1. NUTROPIN AQ [Suspect]
     Indication: BODY HEIGHT BELOW NORMAL
     Route: 058

REACTIONS (6)
  - Growth retardation [Unknown]
  - Injection site pain [Unknown]
  - Injection site hypertrophy [Unknown]
  - Haemangioma [Unknown]
  - Bone pain [Unknown]
  - Headache [Unknown]
